FAERS Safety Report 18915920 (Version 3)
Quarter: 2021Q1

REPORT INFORMATION
  Report Type: Spontaneous
  Country: US (occurrence: US)
  Receive Date: 20210219
  Receipt Date: 20210329
  Transmission Date: 20210420
  Serious: No
  Sender: FDA-Public Use
  Company Number: US-TEVA-2021-US-1881669

PATIENT
  Sex: Female

DRUGS (1)
  1. APRI [Suspect]
     Active Substance: DESOGESTREL\ETHINYL ESTRADIOL
     Route: 065

REACTIONS (7)
  - Product formulation issue [Unknown]
  - Gluten sensitivity [Unknown]
  - Drug ineffective [Unknown]
  - Headache [Unknown]
  - Muscle spasms [Unknown]
  - Metrorrhagia [Unknown]
  - Emotional disorder [Unknown]
